FAERS Safety Report 24442758 (Version 2)
Quarter: 2024Q4

REPORT INFORMATION
  Report Type: Spontaneous
  Country: BR (occurrence: BR)
  Receive Date: 20241016
  Receipt Date: 20241017
  Transmission Date: 20250115
  Serious: No
  Sender: ROCHE
  Company Number: BR-ROCHE-3562313

PATIENT

DRUGS (2)
  1. EMICIZUMAB [Suspect]
     Active Substance: EMICIZUMAB
     Indication: Product used for unknown indication
     Route: 065
     Dates: start: 202402
  2. EMICIZUMAB [Suspect]
     Active Substance: EMICIZUMAB
     Route: 065

REACTIONS (1)
  - Application site pain [Unknown]
